FAERS Safety Report 8755888 (Version 12)
Quarter: 2014Q1

REPORT INFORMATION
  Report Type: Spontaneous
  Country: CA (occurrence: CA)
  Receive Date: 20120830
  Receipt Date: 20140214
  Transmission Date: 20141002
  Serious: Yes (Other)
  Sender: FDA-Public Use
  Company Number: CA-ROCHE-1103786

PATIENT
  Age: 62 Year
  Sex: Female

DRUGS (8)
  1. XOLAIR [Suspect]
     Indication: ASTHMA
     Route: 058
     Dates: start: 20100421
  2. XOLAIR [Suspect]
     Route: 065
     Dates: start: 20140212
  3. SYMBICORT [Concomitant]
  4. ALVESCO [Concomitant]
  5. SINGULAIR [Concomitant]
  6. BRICANYL [Concomitant]
  7. AMOXICLAV [Concomitant]
     Indication: BRONCHITIS
  8. CORTISONE [Concomitant]

REACTIONS (22)
  - Oropharyngeal pain [Unknown]
  - Dyspnoea [Unknown]
  - Paraesthesia [Recovered/Resolved]
  - Injection site erythema [Recovered/Resolved]
  - Skin irritation [Unknown]
  - Headache [Unknown]
  - Nasopharyngitis [Unknown]
  - Injection site pain [Unknown]
  - Bronchitis [Unknown]
  - Respiratory depression [Unknown]
  - General physical health deterioration [Unknown]
  - Sputum retention [Unknown]
  - Dyspnoea exertional [Unknown]
  - Chest discomfort [Unknown]
  - Drug ineffective [Unknown]
  - Rhinorrhoea [Unknown]
  - Jaundice [Unknown]
  - Wheezing [Unknown]
  - Drug-induced liver injury [Recovering/Resolving]
  - Dyspnoea [Unknown]
  - Total lung capacity decreased [Recovering/Resolving]
  - Blood pressure increased [Unknown]
